FAERS Safety Report 8776764 (Version 7)
Quarter: 2013Q1

REPORT INFORMATION
  Report Type: Report from Study
  Country: JP (occurrence: JP)
  Receive Date: 20120911
  Receipt Date: 20130328
  Transmission Date: 20140127
  Serious: Yes (Hospitalization)
  Sender: FDA-Public Use
  Company Number: JP-JNJFOC-20120802169

PATIENT
  Age: 76 Year
  Sex: Male
  Weight: 61 kg

DRUGS (17)
  1. SIMPONI [Suspect]
     Indication: RHEUMATOID ARTHRITIS
     Route: 058
     Dates: start: 20121001
  2. SIMPONI [Suspect]
     Indication: RHEUMATOID ARTHRITIS
     Route: 058
     Dates: start: 20120918
  3. SIMPONI [Suspect]
     Indication: RHEUMATOID ARTHRITIS
     Route: 058
     Dates: start: 20120821
  4. SIMPONI [Suspect]
     Indication: RHEUMATOID ARTHRITIS
     Route: 058
     Dates: start: 20120724
  5. SIMPONI [Suspect]
     Indication: RHEUMATOID ARTHRITIS
     Route: 058
     Dates: start: 20120622
  6. SIMPONI [Suspect]
     Indication: RHEUMATOID ARTHRITIS
     Route: 058
     Dates: start: 20120420
  7. SIMPONI [Suspect]
     Indication: RHEUMATOID ARTHRITIS
     Route: 058
     Dates: start: 20120517
  8. PREDONINE [Suspect]
     Indication: RHEUMATOID ARTHRITIS
     Route: 048
  9. VOLTAREN [Concomitant]
     Indication: RHEUMATOID ARTHRITIS
     Route: 065
  10. CRESTOR [Concomitant]
     Indication: DYSLIPIDAEMIA
     Route: 048
  11. MAGLAX [Concomitant]
     Indication: CONSTIPATION
     Route: 048
  12. LENDORMIN [Concomitant]
     Indication: INSOMNIA
     Route: 048
  13. HUMALOG [Concomitant]
     Indication: DIABETES MELLITUS
     Route: 058
  14. METGLUCO [Concomitant]
     Indication: DIABETES MELLITUS
     Route: 048
  15. JANUVIA [Concomitant]
     Indication: DIABETES MELLITUS
     Route: 048
  16. MUCOSTA [Concomitant]
     Indication: PROPHYLAXIS
     Route: 048
  17. PARIET [Concomitant]
     Indication: PROPHYLAXIS
     Route: 048

REACTIONS (4)
  - Pneumonia [Recovering/Resolving]
  - Bronchitis [Recovering/Resolving]
  - Hepatic function abnormal [Recovered/Resolved]
  - Blood alkaline phosphatase increased [Not Recovered/Not Resolved]
